FAERS Safety Report 7170670-6 (Version None)
Quarter: 2010Q4

REPORT INFORMATION
  Report Type: 
  Country: None (occurrence: None)
  Receive Date: 20101217
  Receipt Date: 20101216
  Transmission Date: 20110411
  Serious: Yes (Other)
  Sender: FDA-Public Use
  Company Number: D0069766A

PATIENT
  Age: 77 Year
  Sex: Female

DRUGS (2)
  1. REQUIP [Suspect]
     Dosage: 4MG TWICE PER DAY
     Route: 048
  2. AZILECT [Concomitant]
     Dosage: 1MG PER DAY
     Route: 048

REACTIONS (2)
  - HALLUCINATION [None]
  - MALAISE [None]
